FAERS Safety Report 6158989-9 (Version None)
Quarter: 2009Q2

REPORT INFORMATION
  Report Type: 
  Country: None (occurrence: None)
  Receive Date: 20090417
  Receipt Date: 20090407
  Transmission Date: 20091009
  Serious: Yes (Other)
  Sender: FDA-Public Use
  Company Number: US-PFIZER INC-2009187886

PATIENT
  Sex: Female
  Weight: 58.059 kg

DRUGS (3)
  1. NARDIL [Suspect]
     Indication: DEPRESSION
     Dosage: 15 MG, 3X/DAY
     Route: 048
     Dates: start: 19830101
  2. NARDIL [Suspect]
     Indication: ANXIETY
  3. VALIUM [Concomitant]

REACTIONS (4)
  - ABORTION SPONTANEOUS [None]
  - ANXIETY [None]
  - INSOMNIA [None]
  - SURGERY [None]
